FAERS Safety Report 10230700 (Version 1)
Quarter: 2014Q2

REPORT INFORMATION
  Report Type: Spontaneous
  Country: US (occurrence: US)
  Receive Date: 20140611
  Receipt Date: 20140611
  Transmission Date: 20141212
  Serious: No
  Sender: FDA-Public Use
  Company Number: US-PFIZER INC-2014158370

PATIENT
  Sex: Female

DRUGS (9)
  1. DOXYCYCLINE CALCIUM [Suspect]
  2. LEVOFLOXACIN [Suspect]
  3. ANCEF [Suspect]
  4. CEFTIN [Suspect]
  5. CIPRO [Suspect]
  6. CODEINE [Suspect]
  7. A-METHAPRED [Suspect]
  8. RANITIDINE [Suspect]
  9. BLEPH-10 [Suspect]

REACTIONS (1)
  - Drug hypersensitivity [Not Recovered/Not Resolved]
